FAERS Safety Report 18621362 (Version 1)
Quarter: 2020Q4

REPORT INFORMATION
  Report Type: Spontaneous
  Country: US (occurrence: US)
  Receive Date: 20201216
  Receipt Date: 20201216
  Transmission Date: 20210114
  Serious: No
  Sender: FDA-Public Use
  Company Number: US-GE HEALTHCARE LIFE SCIENCES-2020CSU005240

PATIENT
  Age: 70 Year
  Sex: Female
  Weight: 62.13 kg

DRUGS (4)
  1. DATSCAN [Suspect]
     Active Substance: IODINE\IOFLUPANE I-123
     Indication: SCAN BRAIN
     Dosage: 181.3 MBQ, SINGLE
     Route: 042
     Dates: start: 20201007, end: 20201007
  2. DATSCAN [Suspect]
     Active Substance: IODINE\IOFLUPANE I-123
     Indication: ATAXIA
  3. DATSCAN [Suspect]
     Active Substance: IODINE\IOFLUPANE I-123
     Indication: TREMOR
  4. POTASSIUM IODIDE. [Concomitant]
     Active Substance: POTASSIUM IODIDE
     Dosage: 130 MG, SINGLE
     Route: 048
     Dates: start: 20201007

REACTIONS (2)
  - No adverse event [Recovered/Resolved]
  - Drug ineffective [Recovered/Resolved]

NARRATIVE: CASE EVENT DATE: 20201007
